FAERS Safety Report 23697557 (Version 1)
Quarter: 2024Q2

REPORT INFORMATION
  Report Type: Spontaneous
  Country: US (occurrence: US)
  Receive Date: 20240402
  Receipt Date: 20240402
  Transmission Date: 20240716
  Serious: No
  Sender: FDA-Public Use
  Company Number: US-009507513-2403USA009392

PATIENT
  Age: 19 Year
  Sex: Male

DRUGS (1)
  1. ZERBAXA [Suspect]
     Active Substance: CEFTOLOZANE SULFATE\TAZOBACTAM SODIUM
     Indication: Shunt infection
     Dosage: 450 MILLIGRAM, Q8H

REACTIONS (2)
  - Product use in unapproved indication [Unknown]
  - No adverse event [Unknown]
